FAERS Safety Report 7599722-3 (Version None)
Quarter: 2011Q3

REPORT INFORMATION
  Report Type: 
  Country: None (occurrence: None)
  Receive Date: 20110711
  Receipt Date: 20110616
  Transmission Date: 20111222
  Serious: No
  Sender: FDA-Public Use
  Company Number: US-ROXANE LABORATORIES, INC.-2011-RO-00965RO

PATIENT
  Sex: Female

DRUGS (5)
  1. PREDNISONE [Suspect]
     Indication: INJECTION SITE NODULE
     Dosage: 2.5 MG
     Route: 048
     Dates: end: 20110616
  2. BENICAR [Concomitant]
     Indication: HYPERTENSION
  3. SYNTHROID [Concomitant]
  4. LOVASTATIN [Concomitant]
  5. VITAMIN B6 [Concomitant]

REACTIONS (7)
  - SKIN ATROPHY [None]
  - WEIGHT DECREASED [None]
  - IMPAIRED HEALING [None]
  - VASCULITIS [None]
  - CONTUSION [None]
  - ADRENAL INSUFFICIENCY [None]
  - ASTHENIA [None]
